FAERS Safety Report 5770398 (Version 4)
Quarter: 2020Q3

REPORT INFORMATION
  Report Type: Spontaneous
  Country: JP (occurrence: JP)
  Receive Date: 20050405
  Receipt Date: 20050720
  Transmission Date: 20201104
  Serious: Yes (Life-Threatening, Hospitalization)
  Sender: FDA-Public Use
  Company Number: JP-GLAXOSMITHKLINE-B0376465A

PATIENT
  Age: 69 Year
  Sex: Female
  Weight: 40 kg

DRUGS (9)
  1. GASMOTIN [Concomitant]
     Route: 048
     Dates: start: 20050226
  2. BERIZYM [Concomitant]
     Active Substance: CELLULASE\DIASTASE\LIPASE
     Route: 048
     Dates: start: 20050226
  3. MAGNESIUM OXIDE. [Concomitant]
     Active Substance: MAGNESIUM OXIDE
     Indication: CONSTIPATION
     Dosage: 1G THREE TIMES PER DAY
     Route: 048
  4. PURSENNID [SENNOSIDE A+B CALCIUM] [Concomitant]
     Active Substance: SENNOSIDES A AND B
     Indication: CONSTIPATION
     Dosage: 1U THREE TIMES PER DAY
     Route: 048
  5. BROTIZOLAM [Concomitant]
     Active Substance: BROTIZOLAM
     Indication: INSOMNIA
     Route: 048
     Dates: start: 20050121
  6. PAXIL [Suspect]
     Active Substance: PAROXETINE HYDROCHLORIDE
     Indication: DEPRESSION
     Dosage: 10MG TWICE PER DAY
     Route: 048
     Dates: end: 20050322
  7. SULPIRIDE [Suspect]
     Active Substance: SULPIRIDE
     Indication: PRODUCT USED FOR UNKNOWN INDICATION
     Dosage: 50MG PER DAY
     Route: 048
     Dates: end: 20050323
  8. PIVMECILLINAM HYDROCHLORIDE. [Suspect]
     Active Substance: PIVMECILLINAM HYDROCHLORIDE
     Indication: PERITONITIS
     Route: 048
     Dates: start: 20050314
  9. STOMILASE [Concomitant]
     Route: 048
     Dates: start: 20050226

REACTIONS (2)
  - Hepatic failure [Recovered/Resolved]
  - Jaundice [Unknown]

NARRATIVE: CASE EVENT DATE: 20050322
